FAERS Safety Report 20655968 (Version 4)
Quarter: 2022Q2

REPORT INFORMATION
  Report Type: Spontaneous
  Country: US (occurrence: None)
  Receive Date: 20220330
  Receipt Date: 20220527
  Transmission Date: 20220720
  Serious: No
  Sender: FDA-Public Use
  Company Number: 2022A131443

PATIENT
  Age: 30178 Day
  Sex: Male
  Weight: 113.4 kg

DRUGS (2)
  1. BYDUREON BCISE [Suspect]
     Active Substance: EXENATIDE
     Indication: Type 2 diabetes mellitus
     Route: 058
     Dates: start: 202202
  2. BYETTA [Concomitant]
     Active Substance: EXENATIDE
     Indication: Type 2 diabetes mellitus

REACTIONS (4)
  - Blood glucose increased [Unknown]
  - Product dose omission issue [Unknown]
  - Device malfunction [Unknown]
  - Device leakage [Unknown]

NARRATIVE: CASE EVENT DATE: 20220327
